FAERS Safety Report 6600954-9 (Version None)
Quarter: 2010Q1

REPORT INFORMATION
  Report Type: 
  Country: None (occurrence: None)
  Receive Date: 20100225
  Receipt Date: 20100211
  Transmission Date: 20100710
  Serious: Yes (Other)
  Sender: FDA-Public Use
  Company Number: US-CELGENEUS-163-20785-10021079

PATIENT
  Sex: Male

DRUGS (3)
  1. THALOMID [Suspect]
     Route: 048
     Dates: start: 20100101
  2. THALOMID [Suspect]
     Route: 048
     Dates: start: 20070101
  3. THALOMID [Suspect]
     Dosage: 100MG, 50MG
     Route: 048
     Dates: start: 20080101

REACTIONS (1)
  - HEPATIC CIRRHOSIS [None]
